FAERS Safety Report 25035437 (Version 2)
Quarter: 2025Q2

REPORT INFORMATION
  Report Type: Spontaneous
  Country: US (occurrence: US)
  Receive Date: 20250304
  Receipt Date: 20250421
  Transmission Date: 20250716
  Serious: No
  Sender: BRISTOL-MYERS SQUIBB COMPANY
  Company Number: US-BRISTOL-MYERS SQUIBB COMPANY-2025-031196

PATIENT
  Age: 78 Year
  Sex: Female

DRUGS (3)
  1. POMALYST [Suspect]
     Active Substance: POMALIDOMIDE
     Indication: Plasma cell myeloma
     Route: 048
  2. POMALYST [Suspect]
     Active Substance: POMALIDOMIDE
     Route: 048
  3. IRON [Suspect]
     Active Substance: IRON
     Indication: Product used for unknown indication

REACTIONS (8)
  - Back pain [Unknown]
  - Fatigue [Unknown]
  - Nausea [Unknown]
  - Constipation [Unknown]
  - Product dose omission in error [Unknown]
  - Blood pressure decreased [Unknown]
  - Dizziness [Not Recovered/Not Resolved]
  - Balance disorder [Not Recovered/Not Resolved]
